FAERS Safety Report 6236123-4 (Version None)
Quarter: 2009Q2

REPORT INFORMATION
  Report Type: 
  Country: None (occurrence: None)
  Receive Date: 20090619
  Receipt Date: 20090609
  Transmission Date: 20091009
  Serious: Yes (Hospitalization)
  Sender: FDA-Public Use
  Company Number: FR-PFIZER INC-2009224423

PATIENT
  Age: 66 Year

DRUGS (11)
  1. ALDACTONE [Suspect]
     Dosage: 80 MG, 1X/DAY
     Route: 048
  2. COLCHIMAX (FRANCE) [Suspect]
     Dosage: UNK
     Route: 048
     Dates: start: 20090401
  3. PERINDOPRIL ERBUMINE [Suspect]
     Dosage: 8 MG, 1X/DAY
     Route: 048
  4. LASIX [Suspect]
     Dosage: 40 MG, 1X/DAY
     Route: 048
  5. SELOKEN [Concomitant]
     Dosage: UNK
  6. DILTIAZEM [Concomitant]
  7. TAHOR [Concomitant]
     Dosage: UNK
  8. PRAXILENE [Concomitant]
     Dosage: UNK
  9. KARDEGIC [Concomitant]
  10. ADANCOR [Concomitant]
  11. NITROGLYCERIN [Concomitant]

REACTIONS (4)
  - DEHYDRATION [None]
  - DIARRHOEA [None]
  - HYPERKALAEMIA [None]
  - RENAL FAILURE ACUTE [None]
